FAERS Safety Report 16677735 (Version 1)
Quarter: 2019Q3

REPORT INFORMATION
  Report Type: Spontaneous
  Country: US (occurrence: US)
  Receive Date: 20190621
  Receipt Date: 20190621
  Transmission Date: 20191004
  Serious: Yes (Hospitalization)
  Sender: FDA-Public Use
  Company Number: None

PATIENT
  Age: 33 Year
  Sex: Male

DRUGS (3)
  1. ENBREL [Suspect]
     Active Substance: ETANERCEPT
     Indication: RHEUMATOID ARTHRITIS
     Route: 058
     Dates: start: 20190507
  2. PREDNISONE. [Concomitant]
     Active Substance: PREDNISONE
  3. SNZ/TMP DS [Concomitant]

REACTIONS (3)
  - Pneumonia [None]
  - Bacterial infection [None]
  - Asthenia [None]

NARRATIVE: CASE EVENT DATE: 201906
